FAERS Safety Report 8959744 (Version 2)
Quarter: 2013Q1

REPORT INFORMATION
  Report Type: Spontaneous
  Country: JP (occurrence: JP)
  Receive Date: 20121212
  Receipt Date: 20130117
  Transmission Date: 20140127
  Serious: Yes (Death, Life-Threatening)
  Sender: FDA-Public Use
  Company Number: JP-009507513-1212JPN003625

PATIENT
  Age: 62 Year
  Sex: Female

DRUGS (1)
  1. JANUVIA TABLETS 50MG [Suspect]
     Dosage: 50 MG, QD
     Route: 048
     Dates: start: 201210, end: 201212

REACTIONS (2)
  - Interstitial lung disease [Fatal]
  - Rheumatoid vasculitis [Fatal]
